FAERS Safety Report 4845803-4 (Version None)
Quarter: 2005Q4

REPORT INFORMATION
  Report Type: 
  Country: None (occurrence: None)
  Receive Date: 20051202
  Receipt Date: 20051202
  Transmission Date: 20060501
  Serious: Yes (Other)
  Sender: FDA-Public Use
  Company Number: None

PATIENT
  Age: 66 Year
  Sex: Male

DRUGS (6)
  1. AVINZA [Suspect]
     Indication: PAIN
     Dosage: 1 CAPSULE DAILY
     Dates: start: 20031218
  2. TRAZODONE HCL [Concomitant]
  3. NASONEX [Concomitant]
  4. FLOMAX [Concomitant]
  5. NEXIUM [Concomitant]
  6. ANDROGEL [Concomitant]

REACTIONS (7)
  - DRUG EFFECT DECREASED [None]
  - DRUG WITHDRAWAL SYNDROME [None]
  - FORMICATION [None]
  - GASTRIC DISORDER [None]
  - NAUSEA [None]
  - PHARMACEUTICAL PRODUCT COMPLAINT [None]
  - PRURITUS [None]
